FAERS Safety Report 13026087 (Version 1)
Quarter: 2016Q4

REPORT INFORMATION
  Report Type: Spontaneous
  Country: US (occurrence: US)
  Receive Date: 20161214
  Receipt Date: 20161214
  Transmission Date: 20170207
  Serious: No
  Sender: FDA-Public Use
  Company Number: US-JNJFOC-20161123545

PATIENT
  Sex: Female
  Weight: 54.43 kg

DRUGS (1)
  1. NORGESTIMATE/ETHINYL ESTRADIOL [Suspect]
     Active Substance: ETHINYL ESTRADIOL\NORGESTIMATE
     Indication: DYSMENORRHOEA
     Route: 048

REACTIONS (4)
  - Abdominal discomfort [Unknown]
  - Product use issue [Unknown]
  - Malaise [Unknown]
  - Eating disorder [Unknown]
